FAERS Safety Report 6942828-X (Version None)
Quarter: 2010Q3

REPORT INFORMATION
  Report Type: 
  Country: None (occurrence: None)
  Receive Date: 20100825
  Receipt Date: 20100825
  Transmission Date: 20110219
  Serious: Yes (Life-Threatening)
  Sender: FDA-Public Use
  Company Number: None

PATIENT
  Age: 58 Year
  Sex: Female
  Weight: 72.5755 kg

DRUGS (4)
  1. PROCTOSOL HC 2.5% CREAM [Suspect]
     Indication: HAEMORRHAGE
     Dosage: 2X A DAY
     Dates: start: 20100806, end: 20100808
  2. APAP W/ CODEINE [Concomitant]
  3. ACETAMINOPHEN [Concomitant]
  4. GENERIC VERSION OF VICODEN W/ ACETAMINOPHEN [Concomitant]

REACTIONS (6)
  - ABDOMINAL PAIN [None]
  - DIZZINESS [None]
  - DYSPNOEA [None]
  - PRODUCT SUBSTITUTION ISSUE [None]
  - PURPURA [None]
  - RASH ERYTHEMATOUS [None]
